FAERS Safety Report 21668307 (Version 3)
Quarter: 2023Q1

REPORT INFORMATION
  Report Type: Spontaneous
  Country: US (occurrence: US)
  Receive Date: 20221201
  Receipt Date: 20230201
  Transmission Date: 20230418
  Serious: Yes (Hospitalization)
  Sender: FDA-Public Use
  Company Number: US-PFIZER INC-202200625950

PATIENT
  Age: 83 Year
  Sex: Male
  Weight: 85.261 kg

DRUGS (2)
  1. RETACRIT [Suspect]
     Active Substance: EPOETIN ALFA-EPBX
     Indication: Anaemia
     Dosage: 20000 IU [Q 2 WEEKS]
  2. RETACRIT [Suspect]
     Active Substance: EPOETIN ALFA-EPBX
     Dosage: 10000 IU, WEEKLY
     Route: 058
     Dates: start: 20220124

REACTIONS (1)
  - Cardiac failure congestive [Unknown]
